FAERS Safety Report 5378020-2 (Version None)
Quarter: 2007Q3

REPORT INFORMATION
  Report Type: 
  Country: None (occurrence: None)
  Receive Date: 20070703
  Receipt Date: 20070619
  Transmission Date: 20080115
  Serious: Yes (Other)
  Sender: FDA-Public Use
  Company Number: AR-GILEAD-2007-0012311

PATIENT
  Sex: Female
  Weight: 54 kg

DRUGS (9)
  1. AMBRISENTAN [Suspect]
     Indication: PULMONARY HYPERTENSION
     Route: 048
     Dates: start: 20050518, end: 20070527
  2. WARFARIN SODIUM [Concomitant]
     Indication: ANTIPHOSPHOLIPID SYNDROME
     Route: 048
     Dates: start: 20070327
  3. WARFARIN SODIUM [Concomitant]
     Route: 048
     Dates: start: 20070327
  4. WARFARIN SODIUM [Concomitant]
     Dates: start: 20040401
  5. ASPIRIN [Concomitant]
     Indication: ANTIPHOSPHOLIPID SYNDROME
     Route: 048
     Dates: start: 20040901
  6. OMEPRAZOLE [Concomitant]
     Indication: GASTRITIS
     Route: 048
     Dates: start: 20050621
  7. NIFEDIPINE [Concomitant]
     Indication: PULMONARY HYPERTENSION
     Route: 048
     Dates: start: 20050416, end: 20070522
  8. ALPRAZOLAM [Concomitant]
     Indication: STRESS
     Route: 048
     Dates: start: 20050816
  9. ALPRAZOLAM [Concomitant]
     Indication: INSOMNIA

REACTIONS (2)
  - DRUG EXPOSURE DURING PREGNANCY [None]
  - PREGNANCY [None]
